FAERS Safety Report 10216889 (Version 1)
Quarter: 2014Q2

REPORT INFORMATION
  Report Type: Spontaneous
  Country: US (occurrence: US)
  Receive Date: 20140604
  Receipt Date: 20140604
  Transmission Date: 20141212
  Serious: Yes (Other)
  Sender: FDA-Public Use
  Company Number: US-FRI-1000067800

PATIENT
  Age: 67 Year
  Sex: Female
  Weight: 67 kg

DRUGS (14)
  1. LINZESS [Suspect]
     Indication: CONSTIPATION
     Dosage: 145 MCG
     Route: 048
     Dates: start: 20130801, end: 201309
  2. LINZESS [Suspect]
     Indication: CONSTIPATION
     Dosage: 290 MCG
     Route: 048
     Dates: start: 201309, end: 20140427
  3. LINZESS [Suspect]
     Indication: CONSTIPATION
     Dosage: 290 MCG
     Route: 048
     Dates: start: 201405, end: 20140501
  4. LINZESS [Suspect]
     Dosage: 290 MCG QOD
     Route: 048
     Dates: start: 20140502
  5. MOBIC [Concomitant]
     Indication: ARTHRITIS
  6. KADIAN [Concomitant]
     Indication: PAIN
     Dosage: 120 MG
  7. KADIAN [Concomitant]
     Indication: BACK DISORDER
  8. LIPITOR [Concomitant]
     Dosage: 40 MG
  9. CARVEDILOL [Concomitant]
     Indication: HYPERTENSION
  10. ACIDOPHILUS [Concomitant]
  11. PSYLLIUM HUSK [Concomitant]
  12. HERBAL SUPPLEMENTS NOS [Concomitant]
  13. VITAMINS NOS [Concomitant]
  14. FLAXSEED [Concomitant]

REACTIONS (7)
  - Lung infection [Recovering/Resolving]
  - Chest pain [Recovering/Resolving]
  - Faecal incontinence [Recovered/Resolved]
  - Oropharyngeal pain [Unknown]
  - Dysphonia [Not Recovered/Not Resolved]
  - Drug ineffective [Recovered/Resolved]
  - Intentional product misuse [Not Recovered/Not Resolved]
